FAERS Safety Report 9412236 (Version 2)
Quarter: 2013Q3

REPORT INFORMATION
  Report Type: Spontaneous
  Country: US (occurrence: None)
  Receive Date: 20130501
  Receipt Date: 20130815
  Transmission Date: 20140515
  Serious: Yes (Hospitalization, Other)
  Sender: FDA-Public Use
  Company Number: ADR-2007-4292

PATIENT
  Sex: Male

DRUGS (10)
  1. LIORESAL INTRATHECAL (BACLOFEN INJECTION) 2000 MCG/ML [Suspect]
     Indication: MUSCLE SPASTICITY
  2. LIORESAL INTRATHECAL (BACLOFEN INJECTION) 2000 MCG/ML [Suspect]
     Indication: DYSTONIA
  3. CYPROHEPTADINE HCL, [Concomitant]
  4. BACLOFEN (ORAL) [Concomitant]
  5. CARNITOR [Concomitant]
  6. COENZYME [Concomitant]
  7. DIAZEPAM [Concomitant]
  8. FELBATOL [Concomitant]
  9. MULTIVITS [Concomitant]
  10. HYOSCYMINE [Concomitant]

REACTIONS (23)
  - Adverse reaction [None]
  - Drug ineffective [None]
  - Overdose [None]
  - Posturing [None]
  - Irritability [None]
  - Sedation [None]
  - Musculoskeletal stiffness [None]
  - Unresponsive to stimuli [None]
  - Drug withdrawal syndrome [None]
  - Discomfort [None]
  - No therapeutic response [None]
  - Bladder dilatation [None]
  - Therapeutic response decreased [None]
  - Accidental overdose [None]
  - Dyskinesia [None]
  - Status epilepticus [None]
  - Electroencephalogram abnormal [None]
  - Staring [None]
  - Convulsion [None]
  - Dysuria [None]
  - Clonus [None]
  - Implant site swelling [None]
  - Incorrect dose administered [None]
